FAERS Safety Report 6273893-3 (Version None)
Quarter: 2009Q3

REPORT INFORMATION
  Report Type: 
  Country: None (occurrence: None)
  Receive Date: 20090716
  Receipt Date: 20090709
  Transmission Date: 20100115
  Serious: Yes (Hospitalization, Other)
  Sender: FDA-Public Use
  Company Number: 2008AG0956

PATIENT
  Age: 65 Year
  Sex: Male

DRUGS (4)
  1. SIMVASTATIN [Suspect]
     Dosage: ORAL
     Route: 048
     Dates: start: 20070701, end: 20071201
  2. SELO-ZOK (METOPROLOL) [Concomitant]
  3. MAREVAN (WARFARIN) [Concomitant]
  4. RAMIPRIL [Concomitant]

REACTIONS (2)
  - DERMATITIS EXFOLIATIVE [None]
  - PRURITUS [None]
